FAERS Safety Report 7830323-5 (Version None)
Quarter: 2011Q4

REPORT INFORMATION
  Report Type: 
  Country: None (occurrence: None)
  Receive Date: 20111021
  Receipt Date: 20111009
  Transmission Date: 20120403
  Serious: Yes (Hospitalization)
  Sender: FDA-Public Use
  Company Number: JP-BRISTOL-MYERS SQUIBB COMPANY-16163206

PATIENT
  Age: 74 Year
  Sex: Male

DRUGS (2)
  1. CEFEPIME [Suspect]
     Indication: FEBRILE NEUTROPENIA
  2. GRANULOCYTE CSF [Suspect]

REACTIONS (2)
  - PSEUDOMEMBRANOUS COLITIS [None]
  - DISSEMINATED INTRAVASCULAR COAGULATION [None]
